FAERS Safety Report 24782757 (Version 1)
Quarter: 2024Q4

REPORT INFORMATION
  Report Type: Spontaneous
  Country: US (occurrence: None)
  Receive Date: 20241226
  Receipt Date: 20241226
  Transmission Date: 20250114
  Serious: Yes (Disabling)
  Sender: Public
  Company Number: None

PATIENT
  Age: 25 Year
  Sex: Male

DRUGS (1)
  1. PROZAC [Suspect]
     Active Substance: FLUOXETINE HYDROCHLORIDE
     Indication: Anxiety
     Dates: start: 20230507, end: 20230625

REACTIONS (1)
  - Sexual dysfunction [None]

NARRATIVE: CASE EVENT DATE: 20230615
